FAERS Safety Report 18198705 (Version 6)
Quarter: 2022Q2

REPORT INFORMATION
  Report Type: Report from Study
  Country: SE (occurrence: SE)
  Receive Date: 20200826
  Receipt Date: 20220520
  Transmission Date: 20220721
  Serious: Yes (Hospitalization)
  Sender: FDA-Public Use
  Company Number: SE-SA-2019SA269722

PATIENT
  Age: 18 Year
  Sex: Female
  Weight: 59 kg

DRUGS (22)
  1. ISATUXIMAB [Suspect]
     Active Substance: ISATUXIMAB
     Indication: Acute myeloid leukaemia
     Dosage: 20 MG/KG, QW
     Route: 042
     Dates: start: 20190913, end: 20190913
  2. ISATUXIMAB [Suspect]
     Active Substance: ISATUXIMAB
     Dosage: 20 MG/KG, QW
     Route: 042
     Dates: start: 20190906, end: 20190906
  3. FLUDARABINE [Suspect]
     Active Substance: FLUDARABINE PHOSPHATE
     Indication: Acute myeloid leukaemia
     Dosage: 150 MG/M2, DAYS 8 TO 12, INCLUSIVE.
     Route: 042
     Dates: start: 20190917, end: 20190917
  4. FLUDARABINE [Suspect]
     Active Substance: FLUDARABINE PHOSPHATE
     Dosage: 30 MG/M2, DAYS 8 TO 12, INCLUSIVE.
     Route: 042
     Dates: start: 20190906, end: 20190906
  5. CYTARABINE [Suspect]
     Active Substance: CYTARABINE
     Indication: Acute myeloid leukaemia
     Dosage: 10 G/M2, DAYS 8 TO 12, INCLUSIVE
     Route: 042
     Dates: start: 20190917, end: 20190917
  6. CYTARABINE [Suspect]
     Active Substance: CYTARABINE
     Dosage: 2 G/M2, DAYS 8 TO 12, INCLUSIVE
     Route: 042
     Dates: start: 20190906, end: 20190906
  7. IDARUBICIN [Suspect]
     Active Substance: IDARUBICIN
     Indication: Acute myeloid leukaemia
     Dosage: 10 MG/M2, DAY 8, 10,AND 12.
     Route: 042
     Dates: start: 20190913, end: 20190913
  8. IDARUBICIN [Suspect]
     Active Substance: IDARUBICIN
     Dosage: 10 MG/M2, DAY 8, 10,AND 12.
     Route: 042
     Dates: start: 20190906, end: 20190906
  9. DEXAMETHASONE [Suspect]
     Active Substance: DEXAMETHASONE
     Indication: Acute myeloid leukaemia
     Dosage: 16 MG/M2, QW
     Route: 048
     Dates: start: 20190913, end: 20190913
  10. DEXAMETHASONE [Suspect]
     Active Substance: DEXAMETHASONE
     Dosage: 10 MG/M2, DAYS ?3, ?2, ?1, 1,
     Route: 065
     Dates: start: 20190906, end: 20190906
  11. MEROPENEM [Concomitant]
     Active Substance: MEROPENEM
     Dosage: UNK
     Route: 042
     Dates: start: 20190907, end: 20191006
  12. DIAZEPAM [Concomitant]
     Active Substance: DIAZEPAM
     Indication: Prophylaxis
     Dosage: UNK
     Route: 048
     Dates: start: 20190906, end: 20190916
  13. MAGNESIUM HYDROXIDE [Concomitant]
     Active Substance: MAGNESIUM HYDROXIDE
     Indication: Prophylaxis
     Dosage: UNK
     Route: 048
     Dates: start: 20190905
  14. ACETAMINOPHEN [Concomitant]
     Active Substance: ACETAMINOPHEN
     Indication: Prophylaxis
     Dosage: 1000 MG, 1X
     Route: 048
     Dates: start: 20190905, end: 20190908
  15. ACETAMINOPHEN [Concomitant]
     Active Substance: ACETAMINOPHEN
     Dosage: 1000 MG, 1X
     Route: 048
     Dates: start: 20190913, end: 20190917
  16. CLEMASTINE [Concomitant]
     Active Substance: CLEMASTINE
     Indication: Prophylaxis
     Dosage: 2 MG, 1X
     Route: 042
     Dates: start: 20190906, end: 20190906
  17. CLEMASTINE [Concomitant]
     Active Substance: CLEMASTINE
     Dosage: 2 MG, 1X
     Route: 042
     Dates: start: 20190913, end: 20190913
  18. ONDANSETRON [Concomitant]
     Active Substance: ONDANSETRON
     Indication: Prophylaxis
     Dosage: UNK
     Route: 048
     Dates: start: 20190913, end: 20190920
  19. PREDNISOLONE [Concomitant]
     Active Substance: PREDNISOLONE
     Indication: Prophylaxis
     Dosage: UNK
     Route: 047
     Dates: start: 20190913, end: 20190917
  20. PREDNISOLONE [Concomitant]
     Active Substance: PREDNISOLONE
     Dosage: UNK
     Route: 065
     Dates: start: 20190912, end: 20190912
  21. METHOTREXATE SODIUM [Concomitant]
     Active Substance: METHOTREXATE SODIUM
     Dosage: UNK
     Route: 065
     Dates: start: 20190912, end: 20190912
  22. CYTARABINE [Concomitant]
     Active Substance: CYTARABINE
     Dosage: UNK
     Dates: start: 20190912, end: 20190912

REACTIONS (2)
  - Febrile neutropenia [Recovered/Resolved]
  - Infusion related reaction [Recovered/Resolved]

NARRATIVE: CASE EVENT DATE: 20190906
